FAERS Safety Report 25968161 (Version 1)
Quarter: 2025Q4

REPORT INFORMATION
  Report Type: Spontaneous
  Country: US (occurrence: US)
  Receive Date: 20251028
  Receipt Date: 20251028
  Transmission Date: 20260117
  Serious: No
  Sender: MACLEODS
  Company Number: US-MACLEODS PHARMA-MAC2025055856

PATIENT
  Age: 84 Year
  Sex: Female
  Weight: 53 kg

DRUGS (3)
  1. LEVOTHYROXINE [Suspect]
     Active Substance: LEVOTHYROXINE
     Indication: Thyroid cancer
     Dosage: TAKEN 5 DAYS A WEEK, START DATE ON 2005 OR 2006, RX NUMBER (6469192 0443)
     Route: 065
  2. LEVOTHYROXINE [Suspect]
     Active Substance: LEVOTHYROXINE
     Dosage: TAKEN 5 DAYS A WEEK, START DATE ON 2005 OR 2006, RX NUMBER (6469190 0443)
     Route: 065
  3. LATANOPROST [Concomitant]
     Active Substance: LATANOPROST
     Indication: Glaucoma
     Dosage: TAKEN AT NIGHT
     Route: 065

REACTIONS (1)
  - Anxiety [Recovering/Resolving]
